FAERS Safety Report 9874655 (Version 1)
Quarter: 2014Q1

REPORT INFORMATION
  Report Type: Spontaneous
  Country: FR (occurrence: FR)
  Receive Date: 20140206
  Receipt Date: 20140206
  Transmission Date: 20141002
  Serious: Yes (Hospitalization)
  Sender: FDA-Public Use
  Company Number: PHHY2014FR012479

PATIENT
  Age: 71 Year
  Sex: Male

DRUGS (10)
  1. TEGRETOL [Suspect]
     Indication: PSYCHOTIC DISORDER
     Dosage: 400 MG, QD
     Route: 048
  2. RISPERDALORO [Suspect]
     Indication: PSYCHOTIC DISORDER
     Dosage: 4 MG, QD
     Route: 048
  3. LOXAPAC [Suspect]
     Indication: PSYCHOTIC DISORDER
     Dosage: 2 ML, QID
     Route: 048
  4. GARDENAL//PHENOBARBITAL [Suspect]
     Indication: PSYCHOTIC DISORDER
     Dosage: 70 MG, QD
     Route: 048
  5. SOLIAN [Suspect]
     Indication: PSYCHOTIC DISORDER
     Dosage: 800 MG, QD
     Route: 048
  6. LEPTICUR [Concomitant]
     Indication: PSYCHOTIC DISORDER
     Dosage: 10 MG, TID
  7. SERESTA [Concomitant]
     Dosage: 50 MG, QD
  8. IMOVANE [Concomitant]
     Dosage: 7.5 MG, QD
     Route: 048
  9. RIVOTRIL [Concomitant]
     Dosage: 2 MG, QD
     Route: 048
  10. ENEMAS [Suspect]
     Indication: INTESTINAL OBSTRUCTION
     Dosage: UNK UKN, UNK

REACTIONS (1)
  - Intestinal obstruction [Recovered/Resolved]
